FAERS Safety Report 16240808 (Version 2)
Quarter: 2019Q2

REPORT INFORMATION
  Report Type: Report from Study
  Country: US (occurrence: US)
  Receive Date: 20190425
  Receipt Date: 20190506
  Transmission Date: 20190711
  Serious: Yes (Disabling, Other)
  Sender: FDA-Public Use
  Company Number: US-ELI_LILLY_AND_COMPANY-US201904008664

PATIENT
  Sex: Male

DRUGS (2)
  1. INSULIN, HUMAN [Suspect]
     Active Substance: INSULIN HUMAN
     Indication: TYPE 1 DIABETES MELLITUS
     Dosage: 32 INTERNATIONAL UNIT, EACH MORNING
     Route: 065
     Dates: start: 1989
  2. INSULIN, HUMAN [Suspect]
     Active Substance: INSULIN HUMAN
     Dosage: 26 INTERNATIONAL UNIT, EACH EVENING
     Route: 065
     Dates: start: 1989

REACTIONS (4)
  - Diabetic vascular disorder [Unknown]
  - Poor peripheral circulation [Unknown]
  - Blood glucose increased [Unknown]
  - Impaired healing [Unknown]
